FAERS Safety Report 4396119-4 (Version None)
Quarter: 2004Q2

REPORT INFORMATION
  Report Type: 
  Country: None (occurrence: None)
  Receive Date: 20040621
  Receipt Date: 20031121
  Transmission Date: 20050107
  Serious: Yes (Death)
  Sender: FDA-Public Use
  Company Number: USA-2003-0011037

PATIENT
  Age: 32 Year
  Sex: Female

DRUGS (6)
  1. OXYCODONE HCL [Suspect]
     Dosage: 5 MG
  2. METHADONE (METHADONE) [Suspect]
  3. MIRTAZAPINE [Suspect]
  4. DIAZEPAM [Suspect]
  5. IBUPROFEN [Suspect]
  6. CAFFEINE (CAFFEINE) [Suspect]

REACTIONS (1)
  - OVERDOSE [None]
